FAERS Safety Report 9481744 (Version 2)
Quarter: 2013Q3

REPORT INFORMATION
  Report Type: Spontaneous
  Country: US (occurrence: US)
  Receive Date: 20130828
  Receipt Date: 20130828
  Transmission Date: 20140515
  Serious: Yes (Other)
  Sender: FDA-Public Use
  Company Number: US-AMGEN-KDL127757

PATIENT
  Age: 47 Year
  Sex: Male

DRUGS (2)
  1. ENBREL [Suspect]
     Indication: RHEUMATOID ARTHRITIS
     Dosage: 50 MG, QWK
     Route: 058
     Dates: start: 19990919
  2. METHOTREXATE [Concomitant]
     Dosage: 17.5 MG, QWK
     Route: 065
     Dates: start: 1983

REACTIONS (2)
  - Optic nerve disorder [Unknown]
  - Iritis [Unknown]
